FAERS Safety Report 8177627-7 (Version None)
Quarter: 2012Q1

REPORT INFORMATION
  Report Type: 
  Country: None (occurrence: None)
  Receive Date: 20120301
  Receipt Date: 20120217
  Transmission Date: 20120608
  Serious: Yes (Other)
  Sender: FDA-Public Use
  Company Number: PHEH2012US004459

PATIENT
  Sex: Female
  Weight: 66.667 kg

DRUGS (1)
  1. GLEEVEC [Suspect]
     Indication: NEOPLASM MALIGNANT
     Dosage: 400 MG,
     Route: 048
     Dates: start: 20111107, end: 20120124

REACTIONS (4)
  - SWELLING [None]
  - ABDOMINAL DISTENSION [None]
  - BREAST ENLARGEMENT [None]
  - SWELLING FACE [None]
